FAERS Safety Report 12680152 (Version 1)
Quarter: 2016Q3

REPORT INFORMATION
  Report Type: Spontaneous
  Country: GB (occurrence: GB)
  Receive Date: 20160824
  Receipt Date: 20160824
  Transmission Date: 20161109
  Serious: Yes (Other)
  Sender: FDA-Public Use
  Company Number: GB-TEVA-685516ACC

PATIENT
  Age: 90 Year
  Sex: Female

DRUGS (2)
  1. SOLIFENACIN [Suspect]
     Active Substance: SOLIFENACIN
  2. NITROFURANTOIN. [Suspect]
     Active Substance: NITROFURANTOIN
     Dosage: 3 DAY COURSE
     Dates: start: 20160717, end: 20160720

REACTIONS (2)
  - Oral mucosal blistering [Unknown]
  - Mouth ulceration [Unknown]
